FAERS Safety Report 6855916-3 (Version None)
Quarter: 2010Q3

REPORT INFORMATION
  Report Type: 
  Country: None (occurrence: None)
  Receive Date: 20100716
  Receipt Date: 20100716
  Transmission Date: 20110219
  Serious: No
  Sender: FDA-Public Use
  Company Number: None

PATIENT
  Sex: Female
  Weight: 77.1115 kg

DRUGS (1)
  1. MELOXICAM [Suspect]
     Indication: MUSCULOSKELETAL PAIN
     Dosage: 1 PILL DAILY
     Dates: start: 20100629

REACTIONS (4)
  - ERYTHEMA [None]
  - FATIGUE [None]
  - HOT FLUSH [None]
  - NAUSEA [None]
